FAERS Safety Report 10397496 (Version 1)
Quarter: 2014Q3

REPORT INFORMATION
  Report Type: Report from Study
  Country: AU (occurrence: AU)
  Receive Date: 20140820
  Receipt Date: 20140820
  Transmission Date: 20150326
  Serious: Yes (Other)
  Sender: FDA-Public Use
  Company Number: AU-BAXTER-2014BAX050641

PATIENT

DRUGS (3)
  1. ENOXAPARIN [Concomitant]
     Active Substance: ENOXAPARIN
     Indication: THROMBOSIS PROPHYLAXIS
     Route: 058
  2. TISSEEL VH [Suspect]
     Active Substance: FIBRINOGEN HUMAN\THROMBIN HUMAN
     Indication: INGUINAL HERNIA REPAIR
     Dosage: 1-2 ML OF FIBRINOGEN AND 1-2 ML OF THROMBIN WITH A FINAL VOLUME OF 2-4 ML
     Route: 065
  3. CEPHALOTHIN [Concomitant]
     Active Substance: CEPHALOTHIN
     Indication: PROPHYLAXIS
     Dosage: SINGLE DOSE
     Route: 042

REACTIONS (1)
  - Hernia [Unknown]
